FAERS Safety Report 10038920 (Version 1)
Quarter: 2014Q1

REPORT INFORMATION
  Report Type: Spontaneous
  Country: US (occurrence: None)
  Receive Date: 20140306
  Receipt Date: 20140306
  Transmission Date: 20141002
  Serious: Yes (Other)
  Sender: FDA-Public Use
  Company Number: 163-21880-12103304

PATIENT
  Age: 73 Year
  Sex: Male
  Weight: 85.28 kg

DRUGS (3)
  1. REVLIMID (LENALIDOMIDE)(5 MILLIGRAM, CAPSULES) [Suspect]
     Indication: MYELODYSPLASTIC SYNDROME
     Dosage: 5 MG, 21 IN 21 D, PO
     Route: 048
     Dates: start: 20120919, end: 20121019
  2. BUDESONIDE(BUDESONIDE) [Concomitant]
  3. PROCRIT(ERYTHROPOIETIN) [Concomitant]

REACTIONS (1)
  - Neutropenia [None]
